FAERS Safety Report 4929564-6 (Version None)
Quarter: 2006Q1

REPORT INFORMATION
  Report Type: 
  Country: None (occurrence: None)
  Receive Date: 20060223
  Receipt Date: 20060206
  Transmission Date: 20060701
  Serious: Yes (Disabling)
  Sender: FDA-Public Use
  Company Number: 2006_000005

PATIENT
  Sex: 0

DRUGS (4)
  1. DEPOCYT [Suspect]
     Indication: LEUKAEMIA RECURRENT PROPHYLAXIS
     Dosage: 50 MG; QOW; INTH
     Route: 037
  2. DEXAMETHASONE [Concomitant]
  3. METHOTREXATE [Concomitant]
  4. CYTARABINE [Concomitant]

REACTIONS (3)
  - BLINDNESS [None]
  - INTRACRANIAL PRESSURE INCREASED [None]
  - PAPILLOEDEMA [None]
